FAERS Safety Report 5932411-7 (Version None)
Quarter: 2008Q4

REPORT INFORMATION
  Report Type: 
  Country: None (occurrence: None)
  Receive Date: 20081028
  Receipt Date: 20081014
  Transmission Date: 20090506
  Serious: Yes (Other)
  Sender: FDA-Public Use
  Company Number: FR-AMGEN-UK313787

PATIENT
  Sex: Male
  Weight: 75 kg

DRUGS (1)
  1. ROMIPLOSTIM [Suspect]
     Indication: DRUG USE FOR UNKNOWN INDICATION
     Route: 065
     Dates: start: 20080701

REACTIONS (1)
  - PLATELET COUNT ABNORMAL [None]
